FAERS Safety Report 8843765 (Version 2)
Quarter: 2012Q4

REPORT INFORMATION
  Report Type: 
  Country: JP (occurrence: JP)
  Receive Date: 20121016
  Receipt Date: 20121109
  Transmission Date: 20130627
  Serious: Yes (Other)
  Sender: FDA-Public Use
  Company Number: JP-009507513-1210JPN006905

PATIENT
  Age: 8 None
  Sex: Male

DRUGS (1)
  1. DECADRON [Suspect]
     Indication: PROSTATE CANCER
     Dosage: 1 mg, qd
     Route: 065

REACTIONS (1)
  - Hepatitis B [Unknown]
